FAERS Safety Report 5762286-0 (Version None)
Quarter: 2008Q2

REPORT INFORMATION
  Report Type: 
  Country: None (occurrence: None)
  Receive Date: 20080609
  Receipt Date: 20080528
  Transmission Date: 20081010
  Serious: Yes (Death, Hospitalization, Other)
  Sender: FDA-Public Use
  Company Number: US-AMGEN-US272748

PATIENT
  Sex: Female
  Weight: 56.8 kg

DRUGS (6)
  1. PROCRIT [Suspect]
     Indication: ANAEMIA OF MALIGNANT DISEASE
     Dates: start: 20071201, end: 20071201
  2. DYNACIRC [Concomitant]
     Dates: end: 20071201
  3. AVALIDE [Concomitant]
     Dates: end: 20071201
  4. TOPROL-XL [Concomitant]
  5. ASPIRIN [Concomitant]
  6. IBUROFEN [Concomitant]

REACTIONS (11)
  - ABDOMINAL DISTENSION [None]
  - ATRIAL FIBRILLATION [None]
  - BLOOD PRESSURE DECREASED [None]
  - CEREBROVASCULAR ACCIDENT [None]
  - CHEST DISCOMFORT [None]
  - DIARRHOEA [None]
  - FATIGUE [None]
  - GASTRIC CANCER [None]
  - NEOPLASM PROGRESSION [None]
  - PALPITATIONS [None]
  - RESPIRATORY DISTRESS [None]
